FAERS Safety Report 8129529-X (Version None)
Quarter: 2012Q1

REPORT INFORMATION
  Report Type: 
  Country: None (occurrence: None)
  Receive Date: 20120210
  Receipt Date: 20120203
  Transmission Date: 20120608
  Serious: Yes (Hospitalization, Other)
  Sender: FDA-Public Use
  Company Number: BE-ROXANE LABORATORIES, INC.-2012-RO-00599RO

PATIENT
  Age: 80 Year
  Sex: Male

DRUGS (8)
  1. OLANZAPINE [Suspect]
     Indication: BIPOLAR DISORDER
     Dosage: 5 MG
  2. BISOPROLOL FUMARATE [Suspect]
     Dosage: 2.5 MG
  3. FUROSEMIDE [Suspect]
     Dosage: 40 MG
  4. POLYETHYLENE GLYCOL [Suspect]
  5. TERAZOSIN HCL [Suspect]
     Dosage: 5 MG
  6. CETIRIZINE HCL [Suspect]
     Dosage: 10 MG
  7. LITHIUM CARBONATE [Suspect]
     Indication: BIPOLAR DISORDER
     Dosage: 750 MG
  8. FELODIPINE [Suspect]
     Dosage: 10 MG

REACTIONS (5)
  - DEHYDRATION [None]
  - CAMPYLOBACTER GASTROENTERITIS [None]
  - RENAL FAILURE [None]
  - TOXICITY TO VARIOUS AGENTS [None]
  - NEPHROGENIC DIABETES INSIPIDUS [None]
